FAERS Safety Report 16052141 (Version 1)
Quarter: 2019Q1

REPORT INFORMATION
  Report Type: Spontaneous
  Country: US (occurrence: US)
  Receive Date: 20190208
  Receipt Date: 20190208
  Transmission Date: 20190418
  Serious: No
  Sender: FDA-Public Use
  Company Number: None

PATIENT
  Age: 72 Year
  Sex: Female

DRUGS (1)
  1. ENBREL [Suspect]
     Active Substance: ETANERCEPT
     Dates: start: 201801

REACTIONS (4)
  - Arthralgia [None]
  - Therapy cessation [None]
  - Joint swelling [None]
  - Product prescribing issue [None]

NARRATIVE: CASE EVENT DATE: 20190125
